FAERS Safety Report 5914082-9 (Version None)
Quarter: 2008Q4

REPORT INFORMATION
  Report Type: 
  Country: None (occurrence: None)
  Receive Date: 20081009
  Receipt Date: 20080929
  Transmission Date: 20090506
  Serious: Yes (Death, Hospitalization)
  Sender: FDA-Public Use
  Company Number: US-CVT-080032

PATIENT

DRUGS (10)
  1. RANEXA [Suspect]
     Indication: LEFT VENTRICULAR HYPERTROPHY
     Dosage: 500 MG, BID
     Route: 048
     Dates: start: 20070314, end: 20070316
  2. RANEXA [Suspect]
     Indication: ANGINA PECTORIS
  3. ASPIRIN [Concomitant]
     Dosage: 325 MG, QD
     Route: 048
  4. GLYBURIDE [Concomitant]
     Dosage: 10 MG, BID
     Route: 048
  5. ZOCOR [Concomitant]
     Dosage: 80 MG, QD
     Route: 048
  6. LOPRESSOR [Concomitant]
     Dosage: 25 MG, BID
     Route: 048
  7. NEXIUM [Concomitant]
     Dosage: 40 MG, QD
     Route: 048
  8. PERI-COLACE [Concomitant]
     Dosage: 100 MG, BID
     Route: 048
  9. LOVENOX [Concomitant]
     Dosage: 1 MG, QD
     Route: 058
  10. TERAZOSIN HCL [Concomitant]

REACTIONS (3)
  - CARDIOPULMONARY FAILURE [None]
  - LOSS OF CONSCIOUSNESS [None]
  - SYNCOPE [None]
